FAERS Safety Report 10194711 (Version 2)
Quarter: 2014Q2

REPORT INFORMATION
  Report Type: Spontaneous
  Country: JP (occurrence: JP)
  Receive Date: 20140526
  Receipt Date: 20140605
  Transmission Date: 20141212
  Serious: Yes (Hospitalization)
  Sender: FDA-Public Use
  Company Number: JP-ROCHE-1404399

PATIENT
  Age: 78 Year
  Sex: Female

DRUGS (1)
  1. ACTEMRA [Suspect]
     Indication: RHEUMATOID ARTHRITIS
     Dosage: LAST DOSE PRIOR TO ADVERSE EVENTS: 08/MAY/2014
     Route: 058
     Dates: start: 20140227

REACTIONS (5)
  - Pneumocystis jirovecii pneumonia [Unknown]
  - Nasopharyngitis [Unknown]
  - Cough [Unknown]
  - Productive cough [Unknown]
  - Feeling cold [Unknown]
